FAERS Safety Report 5973260-3 (Version None)
Quarter: 2008Q4

REPORT INFORMATION
  Report Type: 
  Country: None (occurrence: None)
  Receive Date: 20081201
  Receipt Date: 20081117
  Transmission Date: 20090506
  Serious: Yes (Death)
  Sender: FDA-Public Use
  Company Number: JP-JNJCH-2008055640

PATIENT
  Age: 37 Year
  Sex: Male

DRUGS (1)
  1. DIPHENHYDRAMINE HCL [Suspect]
     Indication: COMPLETED SUICIDE
     Dosage: TEXT:UNSPECIFIED
     Route: 048

REACTIONS (2)
  - COMPLETED SUICIDE [None]
  - PULMONARY CONGESTION [None]
